FAERS Safety Report 14564878 (Version 2)
Quarter: 2018Q1

REPORT INFORMATION
  Report Type: Report from Study
  Country: None (occurrence: TR)
  Receive Date: 20180223
  Receipt Date: 20180313
  Transmission Date: 20180509
  Serious: Yes (Hospitalization)
  Sender: FDA-Public Use
  Company Number: TR-ABBVIE-18K-161-2263334-00

PATIENT
  Age: 66 Year
  Sex: Male
  Weight: 80 kg

DRUGS (8)
  1. BELOC ZOK [Concomitant]
     Active Substance: METOPROLOL SUCCINATE
     Indication: MYOCARDIAL INFARCTION
     Route: 048
  2. LEPONEX [Concomitant]
     Active Substance: CLOZAPINE
     Indication: PARKINSON^S DISEASE
     Route: 048
  3. UROREC [Concomitant]
     Active Substance: SILODOSIN
     Indication: PARKINSON^S DISEASE
     Route: 048
  4. DUODOPA [Suspect]
     Active Substance: CARBIDOPA\LEVODOPA
     Indication: PARKINSON^S DISEASE
     Dosage: MORNING DOSE(ML):5.00??CONTINOUS DOSE(ML):2.50??EXTRA DOSE(ML):1.00
     Route: 050
     Dates: start: 20180219
  5. LUSTRAL [Concomitant]
     Active Substance: SERTRALINE HYDROCHLORIDE
     Indication: PARKINSON^S DISEASE
     Route: 048
  6. MOTIS [Concomitant]
     Indication: PARKINSON^S DISEASE
     Route: 048
  7. DELIX [Concomitant]
     Active Substance: RAMIPRIL
     Indication: MYOCARDIAL INFARCTION
     Route: 048
  8. PK MERZ [Concomitant]
     Active Substance: AMANTADINE SULFATE
     Indication: PARKINSON^S DISEASE
     Route: 048

REACTIONS (2)
  - Expired product administered [Recovered/Resolved]
  - Abdominal pain [Recovered/Resolved]

NARRATIVE: CASE EVENT DATE: 20180220
